FAERS Safety Report 9783445 (Version 2)
Quarter: 2014Q1

REPORT INFORMATION
  Report Type: Spontaneous
  Country: FR (occurrence: FR)
  Receive Date: 20131226
  Receipt Date: 20140109
  Transmission Date: 20141002
  Serious: Yes (Hospitalization, Other)
  Sender: FDA-Public Use
  Company Number: FR-PFIZER INC-2013365658

PATIENT
  Age: 24 Year
  Sex: Female

DRUGS (3)
  1. DOSTINEX [Suspect]
     Dosage: 0.5 DF, WEEKLY
     Route: 048
     Dates: start: 201201
  2. LAMICTAL [Interacting]
     Dosage: UNK
     Dates: start: 201309, end: 2013
  3. LAMICTAL [Interacting]
     Dosage: 100 MG, TWICE DAILY
     Dates: start: 201311

REACTIONS (4)
  - Drug interaction [Unknown]
  - Epilepsy [Recovered/Resolved]
  - Sleep disorder [Unknown]
  - Anxiety [Unknown]
